FAERS Safety Report 17330004 (Version 1)
Quarter: 2020Q1

REPORT INFORMATION
  Report Type: Spontaneous
  Country: US (occurrence: US)
  Receive Date: 20200127
  Receipt Date: 20200127
  Transmission Date: 20200409
  Serious: No
  Sender: FDA-Public Use
  Company Number: US-REGENERON PHARMACEUTICALS, INC.-2019-54703

PATIENT

DRUGS (2)
  1. EYLEA [Suspect]
     Active Substance: AFLIBERCEPT
     Indication: NEOVASCULAR AGE-RELATED MACULAR DEGENERATION
     Dosage: 2 MG, EVERY 12 WEEKS IN THE LEFT EYE
     Route: 031
     Dates: start: 2015
  2. VITAMIN C [Concomitant]
     Active Substance: ASCORBIC ACID
     Indication: PRODUCT USED FOR UNKNOWN INDICATION

REACTIONS (7)
  - Abdominal discomfort [Unknown]
  - Superficial injury of eye [Recovered/Resolved]
  - Rhinorrhoea [Recovered/Resolved]
  - Unevaluable event [Unknown]
  - Hypertension [Unknown]
  - Nervousness [Unknown]
  - Lacrimation increased [Recovered/Resolved]
